FAERS Safety Report 26121400 (Version 1)
Quarter: 2025Q4

REPORT INFORMATION
  Report Type: Spontaneous
  Country: US (occurrence: None)
  Receive Date: 20251204
  Receipt Date: 20251204
  Transmission Date: 20260118
  Serious: Yes (Other)
  Sender: FDA-CTU
  Company Number: None

PATIENT
  Sex: Female

DRUGS (5)
  1. SKYRIZI [Suspect]
     Active Substance: RISANKIZUMAB-RZAA
     Indication: Psoriasis
     Dosage: OTHER FREQUENCY : EVERY 12 WEEKS;?
     Route: 058
     Dates: start: 20250214
  2. ALBUTEROL AER HFA [Concomitant]
  3. OZEMPIC INJ 2MG/3ML [Concomitant]
  4. SINGULAIR [Concomitant]
     Active Substance: MONTELUKAST SODIUM
  5. ZYRTEC ALLGYTAB 10MG [Concomitant]

REACTIONS (10)
  - Intentional dose omission [None]
  - Psoriasis [None]
  - Surgery [None]
  - Condition aggravated [None]
  - Genital rash [None]
  - Rash [None]
  - Arthralgia [None]
  - Discomfort [None]
  - Pain [None]
  - Loss of personal independence in daily activities [None]
